FAERS Safety Report 7496914-9 (Version None)
Quarter: 2011Q2

REPORT INFORMATION
  Report Type: 
  Country: None (occurrence: None)
  Receive Date: 20110516
  Receipt Date: 20101126
  Transmission Date: 20111010
  Serious: Yes (Hospitalization)
  Sender: FDA-Public Use
  Company Number: 2010004816

PATIENT
  Age: 55 Year
  Sex: Male
  Weight: 63.1 kg

DRUGS (8)
  1. FRUSEMIDE (FURSEMIDE) [Concomitant]
  2. ERLOTINIB HYDROCHLORIDE [Suspect]
     Indication: HEPATIC NEOPLASM MALIGNANT
     Dosage: 150 MG, QD, ORAL
     Route: 048
     Dates: start: 20101004, end: 20101025
  3. SORAFENIB [Suspect]
     Indication: HEPATIC NEOPLASM MALIGNANT
     Dosage: 400 MG, ORAL
     Route: 048
     Dates: start: 20101004, end: 20101025
  4. ADEFOVIR (ADEFOVIR) [Concomitant]
  5. LAMIVUDINE [Concomitant]
  6. MAXOLON [Concomitant]
  7. FORTISIP (FORTISIP) [Concomitant]
  8. SUCRALFATE (SUCRALFARE) [Concomitant]

REACTIONS (11)
  - OESOPHAGEAL VARICES HAEMORRHAGE [None]
  - HAEMATOCRIT DECREASED [None]
  - LYMPHOCYTE COUNT DECREASED [None]
  - HEPATIC NEOPLASM MALIGNANT [None]
  - RED BLOOD CELL COUNT DECREASED [None]
  - GASTROINTESTINAL HAEMORRHAGE [None]
  - ACTIVATED PARTIAL THROMBOPLASTIN TIME PROLONGED [None]
  - GASTRIC VARICES [None]
  - HAEMOGLOBIN DECREASED [None]
  - MONOCYTE COUNT DECREASED [None]
  - DISEASE PROGRESSION [None]
